FAERS Safety Report 7035792-9 (Version None)
Quarter: 2010Q4

REPORT INFORMATION
  Report Type: 
  Country: None (occurrence: None)
  Receive Date: 20101008
  Receipt Date: 20101006
  Transmission Date: 20110411
  Serious: Yes (Hospitalization)
  Sender: FDA-Public Use
  Company Number: CH-BAYER-201041573GPV

PATIENT
  Age: 88 Year
  Sex: Female

DRUGS (5)
  1. ASPIRIN [Suspect]
     Indication: PRODUCT USED FOR UNKNOWN INDICATION
     Dosage: TOTAL DAILY DOSE: 100 MG
     Route: 048
     Dates: end: 20100908
  2. ATACAND [Concomitant]
  3. CONCOR [Concomitant]
     Route: 048
  4. SPASMO CANULASE/GLUTAMIC ACID HYDROCHLORIDE, SODIUM DEHYDROCHOLATE ETC [Concomitant]
     Route: 048
  5. PHLEBOSTASIN [Concomitant]
     Route: 048

REACTIONS (3)
  - HAEMORRHAGIC ANAEMIA [None]
  - PRESYNCOPE [None]
  - RECTAL HAEMORRHAGE [None]
